FAERS Safety Report 16409211 (Version 1)
Quarter: 2019Q2

REPORT INFORMATION
  Report Type: Spontaneous
  Country: US (occurrence: US)
  Receive Date: 20190610
  Receipt Date: 20190610
  Transmission Date: 20190711
  Serious: No
  Sender: FDA-Public Use
  Company Number: US-DSJP-DSU-2019-119288

PATIENT

DRUGS (1)
  1. SAVAYSA [Suspect]
     Active Substance: EDOXABAN TOSYLATE
     Indication: DEEP VEIN THROMBOSIS
     Dosage: 60 MG, QD
     Route: 048
     Dates: start: 201905, end: 201905

REACTIONS (6)
  - Asthenia [Unknown]
  - Paraesthesia [Unknown]
  - Mental disorder [Unknown]
  - Fatigue [Unknown]
  - Aphasia [None]
  - Nausea [Unknown]

NARRATIVE: CASE EVENT DATE: 201905
